FAERS Safety Report 6262588-8 (Version None)
Quarter: 2009Q3

REPORT INFORMATION
  Report Type: 
  Country: None (occurrence: None)
  Receive Date: 20090709
  Receipt Date: 20090706
  Transmission Date: 20100115
  Serious: Yes (Hospitalization)
  Sender: FDA-Public Use
  Company Number: US-ELI_LILLY_AND_COMPANY-US200907000856

PATIENT
  Age: 48 Year
  Sex: Male

DRUGS (1)
  1. HUMULIN R [Suspect]

REACTIONS (1)
  - HOSPITALISATION [None]
